FAERS Safety Report 8416560-X (Version None)
Quarter: 2012Q2

REPORT INFORMATION
  Report Type: 
  Country: None (occurrence: None)
  Receive Date: 20120606
  Receipt Date: 20120525
  Transmission Date: 20120825
  Serious: Yes (Hospitalization)
  Sender: FDA-Public Use
  Company Number: PL-SHIRE-ALL1-2012-02696

PATIENT
  Sex: Male

DRUGS (5)
  1. IDURSULFASE [Suspect]
     Indication: MUCOPOLYSACCHARIDOSIS II
     Dosage: UNK, 1X/WEEK
     Route: 041
     Dates: start: 20090924
  2. CILAZAPRIL [Concomitant]
     Indication: CARDIOVASCULAR DISORDER
     Dosage: 0.25 MG, 1X/DAY:QD
     Route: 048
     Dates: start: 20090916
  3. LAMOTRIGINE [Concomitant]
     Indication: NERVOUS SYSTEM DISORDER
     Dosage: 75 MG, 2X/DAY:BID
     Route: 065
     Dates: start: 20090916
  4. LEVETIRACETAM [Concomitant]
     Indication: NERVOUS SYSTEM DISORDER
     Dosage: 375 MG, 2X/DAY:BID
     Route: 065
     Dates: start: 20100701
  5. TRIMEBUTINE [Concomitant]
     Indication: GASTROINTESTINAL DISORDER
     Dosage: UNK, UNKNOWN
     Route: 065
     Dates: start: 20100701

REACTIONS (2)
  - THROMBOCYTOPENIA [None]
  - PNEUMONIA [None]
